FAERS Safety Report 8402544 (Version 3)
Quarter: 2012Q4

REPORT INFORMATION
  Report Type: Spontaneous
  Country: JP (occurrence: None)
  Receive Date: 20120131
  Receipt Date: 20120822
  Transmission Date: 20130627
  Serious: Yes (Death, Life-Threatening)
  Sender: FDA-Public Use
  Company Number: JP-2012-10231

PATIENT
  Age: 85 Year
  Sex: Male
  Weight: 49 kg

DRUGS (14)
  1. SAMSCA [Suspect]
     Indication: FLUID RETENTION
     Dosage: 15 MG MILLIGRAM(S), QAM, ORAL
     Route: 048
     Dates: start: 20111228, end: 20120109
  2. LASIX [Suspect]
     Indication: CARDIAC FAILURE
     Dosage: 48 ML MILLILITRE(S), DAILY DOSE, INTRAVENOUS
     Route: 042
  3. SLOW-K [Concomitant]
  4. PREDOPA [Concomitant]
  5. DOBUTREX [Concomitant]
  6. LOSARTAN POTASSIUM [Concomitant]
  7. LASIX [Concomitant]
  8. ASPIRIN [Concomitant]
  9. LANSOPRAZOLE [Concomitant]
  10. LIVALO (PITAVASTATIN CALCIUM) TABLET [Concomitant]
  11. TICLOPIDINE HYDROCHLORIDE [Concomitant]
  12. PLETAL [Concomitant]
  13. ALLOZYM (ALLOPURINOL) TABLET [Concomitant]
  14. TIZANIDINE HYDROCHLORIDE [Concomitant]

REACTIONS (6)
  - Hyperkalaemia [None]
  - Pneumonia [None]
  - Anuria [None]
  - Depressed level of consciousness [None]
  - Cardiac failure [None]
  - Condition aggravated [None]
